FAERS Safety Report 12180296 (Version 2)
Quarter: 2016Q1

REPORT INFORMATION
  Report Type: Spontaneous
  Country: SE (occurrence: SE)
  Receive Date: 20160315
  Receipt Date: 20160324
  Transmission Date: 20160526
  Serious: Yes (Hospitalization)
  Sender: FDA-Public Use
  Company Number: SE-INCYTE CORPORATION-2016IN001402

PATIENT
  Age: 72 Year
  Sex: Male

DRUGS (11)
  1. HYDREA [Concomitant]
     Active Substance: HYDROXYUREA
     Indication: PRODUCT USED FOR UNKNOWN INDICATION
     Route: 065
  2. VI-SIBLIN                          /00222601/ [Concomitant]
  3. NITROLINGUAL [Concomitant]
     Active Substance: NITROGLYCERIN
     Indication: PRODUCT USED FOR UNKNOWN INDICATION
     Route: 065
  4. SIMVASTATIN. [Concomitant]
     Active Substance: SIMVASTATIN
  5. OCTOSTIM [Concomitant]
     Active Substance: DESMOPRESSIN ACETATE
     Indication: PRODUCT USED FOR UNKNOWN INDICATION
     Route: 065
  6. LEVAXIN [Concomitant]
     Active Substance: LEVOTHYROXINE SODIUM
     Indication: PRODUCT USED FOR UNKNOWN INDICATION
     Route: 065
  7. JAKAFI [Suspect]
     Active Substance: RUXOLITINIB
     Indication: MYELOFIBROSIS
     Dosage: 15 MG, BID
     Route: 048
     Dates: start: 20141121
  8. TROMBYL [Concomitant]
     Active Substance: ASPIRIN
     Indication: PRODUCT USED FOR UNKNOWN INDICATION
     Route: 065
  9. FOLACIN                            /00024201/ [Concomitant]
     Active Substance: FOLIC ACID
  10. SELOKENZOC [Concomitant]
     Active Substance: METOPROLOL SUCCINATE
  11. BEHEPAN [Concomitant]
     Active Substance: HYDROXOCOBALAMIN

REACTIONS (1)
  - Laryngeal papilloma [Recovered/Resolved]

NARRATIVE: CASE EVENT DATE: 2015
